FAERS Safety Report 15882533 (Version 1)
Quarter: 2019Q1

REPORT INFORMATION
  Report Type: Spontaneous
  Country: FR (occurrence: FR)
  Receive Date: 20190129
  Receipt Date: 20190129
  Transmission Date: 20190417
  Serious: Yes (Other)
  Sender: FDA-Public Use
  Company Number: FR-TEVA-2019-FR-1003875

PATIENT
  Age: 86 Year
  Sex: Male
  Weight: 97 kg

DRUGS (6)
  1. ESIDREX [Suspect]
     Active Substance: HYDROCHLOROTHIAZIDE
     Indication: PRODUCT USED FOR UNKNOWN INDICATION
     Dosage: 12.5 MILLIGRAM DAILY;
     Route: 048
     Dates: start: 20181028, end: 20181104
  2. GENTAMICINE [Suspect]
     Active Substance: GENTAMICIN
     Indication: ENDOCARDITIS
     Dosage: 1ST INJECTION ON 23/10/2018
     Route: 042
     Dates: start: 20181023, end: 20181102
  3. LOVENOX [Concomitant]
     Active Substance: ENOXAPARIN SODIUM
     Indication: THROMBOSIS PROPHYLAXIS
     Dosage: 4000 IU (INTERNATIONAL UNIT) DAILY;
     Route: 058
     Dates: start: 20181022, end: 20181104
  4. OXAZEPAM. [Concomitant]
     Active Substance: OXAZEPAM
     Indication: ANXIETY
     Dosage: 15 MILLIGRAM DAILY;
     Route: 048
     Dates: start: 20181027
  5. CHLORHYDRATE DE NEFOPAM [Concomitant]
     Active Substance: NEFOPAM HYDROCHLORIDE
     Indication: PAIN
  6. AMOXICILLINE [Suspect]
     Active Substance: AMOXICILLIN
     Indication: ENDOCARDITIS
     Dosage: 12 GRAM DAILY;
     Route: 042
     Dates: start: 20181023, end: 20181104

REACTIONS (2)
  - Renal failure [Recovered/Resolved]
  - Haematuria [Recovered/Resolved]

NARRATIVE: CASE EVENT DATE: 20181104
